FAERS Safety Report 4811819-7 (Version None)
Quarter: 2005Q4

REPORT INFORMATION
  Report Type: 
  Country: None (occurrence: None)
  Receive Date: 20051026
  Receipt Date: 20051019
  Transmission Date: 20060501
  Serious: Yes (Hospitalization)
  Sender: FDA-Public Use
  Company Number: 2004098112

PATIENT
  Sex: Male

DRUGS (1)
  1. CELEBREX [Suspect]
     Indication: BONE PAIN
     Dosage: 200 MG, ORAL
     Route: 048
     Dates: start: 20021201, end: 20041001

REACTIONS (1)
  - GENERAL PHYSICAL HEALTH DETERIORATION [None]
